FAERS Safety Report 8107013-7 (Version None)
Quarter: 2012Q1

REPORT INFORMATION
  Report Type: 
  Country: None (occurrence: None)
  Receive Date: 20120202
  Receipt Date: 20120202
  Transmission Date: 20120608
  Serious: No
  Sender: FDA-Public Use
  Company Number: None

PATIENT
  Age: 61 Year
  Sex: Female
  Weight: 64.863 kg

DRUGS (1)
  1. TERBINAFINE HCL [Suspect]
     Indication: ONYCHOLYSIS
     Dosage: ONE PILL -DR INSTRUCTIONS-
     Route: 048
     Dates: start: 20120101, end: 20120110

REACTIONS (6)
  - INCORRECT DOSE ADMINISTERED [None]
  - IRRITABILITY [None]
  - FEELING ABNORMAL [None]
  - INAPPROPRIATE SCHEDULE OF DRUG ADMINISTRATION [None]
  - TINNITUS [None]
  - MIDDLE INSOMNIA [None]
